FAERS Safety Report 20857228 (Version 2)
Quarter: 2022Q2

REPORT INFORMATION
  Report Type: Spontaneous
  Country: US (occurrence: US)
  Receive Date: 20220520
  Receipt Date: 20220620
  Transmission Date: 20220721
  Serious: No
  Sender: FDA-Public Use
  Company Number: US-SA-SAC20220518000588

PATIENT
  Age: 54 Year
  Sex: Male

DRUGS (11)
  1. KEVZARA [Suspect]
     Active Substance: SARILUMAB
     Indication: Rheumatoid arthritis
     Dosage: 200 MG, QOW
     Route: 058
     Dates: start: 20220420
  2. KEVZARA [Suspect]
     Active Substance: SARILUMAB
     Indication: Body mass index
  3. OXYCODONE AND ACETAMINOPHEN [Concomitant]
     Active Substance: ACETAMINOPHEN\OXYCODONE HYDROCHLORIDE
  4. ACETAMINOPHEN\HYDROCODONE [Concomitant]
     Active Substance: ACETAMINOPHEN\HYDROCODONE
  5. DULOXETINE HYDROCHLORIDE [Concomitant]
     Active Substance: DULOXETINE HYDROCHLORIDE
  6. MORPHINE SULFATE [Concomitant]
     Active Substance: MORPHINE SULFATE
  7. NAPROXEN [Concomitant]
     Active Substance: NAPROXEN
  8. CEFDINIR [Concomitant]
     Active Substance: CEFDINIR
  9. OFLOXACIN [Concomitant]
     Active Substance: OFLOXACIN
  10. AMOXICILLIN [Concomitant]
     Active Substance: AMOXICILLIN
  11. DEXTROSE [Concomitant]
     Active Substance: DEXTROSE

REACTIONS (2)
  - Drug ineffective [Unknown]
  - Product use in unapproved indication [Unknown]
